FAERS Safety Report 24365734 (Version 1)
Quarter: 2024Q3

REPORT INFORMATION
  Report Type: Spontaneous
  Country: US (occurrence: None)
  Receive Date: 20240925
  Receipt Date: 20240925
  Transmission Date: 20241016
  Serious: No
  Sender: Public
  Company Number: None

PATIENT
  Age: 68 Year
  Sex: Male

DRUGS (1)
  1. ADBRY [Suspect]
     Active Substance: TRALOKINUMAB-LDRM
     Indication: Dermatitis atopic
     Dosage: INJECT 600MG (4 SYRINGES) SUBCUTANEOUSLY ON DAY 1, THEN  300MG (2 SYRINGES) EVERY 2 WEEKS ?
     Dates: start: 202403

REACTIONS (1)
  - Sinusitis [None]
